FAERS Safety Report 9706711 (Version 1)
Quarter: 2013Q4

REPORT INFORMATION
  Report Type: Spontaneous
  Country: US (occurrence: US)
  Receive Date: 20131125
  Receipt Date: 20131125
  Transmission Date: 20140711
  Serious: No
  Sender: FDA-Public Use
  Company Number: US-009507513-1311USA006834

PATIENT
  Age: 59 Year
  Sex: Male

DRUGS (3)
  1. SYLATRON [Suspect]
     Indication: MALIGNANT MELANOMA
     Dosage: UNK, QW (THERAPY ROUTED REPORTED AS INJECTION)
     Dates: start: 20131111
  2. FLONASE [Concomitant]
     Dosage: UNK
  3. METFORMIN [Concomitant]
     Dosage: METFORMIN 500

REACTIONS (9)
  - Dysuria [Not Recovered/Not Resolved]
  - Discomfort [Not Recovered/Not Resolved]
  - Tremor [Not Recovered/Not Resolved]
  - Heart rate increased [Not Recovered/Not Resolved]
  - Pyrexia [Not Recovered/Not Resolved]
  - Fatigue [Not Recovered/Not Resolved]
  - Asthenia [Not Recovered/Not Resolved]
  - Chills [Not Recovered/Not Resolved]
  - Nausea [Not Recovered/Not Resolved]
